FAERS Safety Report 9502418 (Version 1)
Quarter: 2013Q3

REPORT INFORMATION
  Report Type: Report from Study
  Country: CA (occurrence: CA)
  Receive Date: 20130906
  Receipt Date: 20130906
  Transmission Date: 20140515
  Serious: Yes (Other)
  Sender: FDA-Public Use
  Company Number: CA-ROCHE-1270454

PATIENT
  Sex: Female
  Weight: 90.7 kg

DRUGS (13)
  1. RITUXAN [Suspect]
     Indication: RHEUMATOID ARTHRITIS
     Dosage: FREQUENCY:  DAY 1 AND DAY 15
     Route: 042
     Dates: start: 20090416
  2. DIPHENHYDRAMINE HCL [Concomitant]
     Indication: PREMEDICATION
     Route: 048
     Dates: start: 20100414
  3. ACETAMINOPHEN [Concomitant]
     Indication: PREMEDICATION
     Route: 048
     Dates: start: 20100414
  4. METHYLPREDNISOLONE [Concomitant]
     Indication: PREMEDICATION
     Route: 042
     Dates: start: 20100414
  5. SEPTRA [Concomitant]
  6. VESICARE [Concomitant]
  7. PLAQUENIL [Concomitant]
     Route: 065
  8. MELOXICAM [Concomitant]
     Route: 065
  9. LOSEC (CANADA) [Concomitant]
  10. QUININE [Concomitant]
     Indication: RESTLESS LEGS SYNDROME
  11. VITAMIN B12 [Concomitant]
  12. METHOTREXATE [Concomitant]
     Route: 048
  13. FOLIC ACID [Concomitant]

REACTIONS (10)
  - Hypertension [Not Recovered/Not Resolved]
  - Pain [Not Recovered/Not Resolved]
  - Muscle spasms [Recovering/Resolving]
  - Hypoaesthesia [Recovering/Resolving]
  - Intervertebral disc protrusion [Recovering/Resolving]
  - Blood iron decreased [Recovered/Resolved]
  - Dysphagia [Unknown]
  - Musculoskeletal stiffness [Unknown]
  - Rheumatoid arthritis [Unknown]
  - Drug ineffective [Unknown]
